FAERS Safety Report 9108927 (Version 2)
Quarter: 2013Q1

REPORT INFORMATION
  Report Type: Report from Study
  Country: US (occurrence: US)
  Receive Date: 20130222
  Receipt Date: 20130313
  Transmission Date: 20140127
  Serious: Yes (Hospitalization)
  Sender: FDA-Public Use
  Company Number: US-US-EMD SERONO, INC.-7194789

PATIENT
  Age: 69 None
  Sex: Female
  Weight: 68 kg

DRUGS (6)
  1. REBIF [Suspect]
     Indication: MULTIPLE SCLEROSIS
     Route: 058
     Dates: start: 201005, end: 201212
  2. REBIF [Suspect]
     Route: 058
     Dates: start: 201212
  3. BACLOFEN [Suspect]
     Indication: PRODUCT USED FOR UNKNOWN INDICATION
  4. NEURONTIN [Concomitant]
     Indication: PRODUCT USED FOR UNKNOWN INDICATION
  5. CALCIUM [Concomitant]
     Indication: PRODUCT USED FOR UNKNOWN INDICATION
     Dates: end: 201302
  6. CALCIUM [Concomitant]
     Dates: start: 201302

REACTIONS (3)
  - Syncope [Recovering/Resolving]
  - Hypersomnia [Recovering/Resolving]
  - Influenza like illness [Recovered/Resolved]
